FAERS Safety Report 16263359 (Version 7)
Quarter: 2020Q1

REPORT INFORMATION
  Report Type: Report from Study
  Country: US (occurrence: US)
  Receive Date: 20190502
  Receipt Date: 20200316
  Transmission Date: 20200409
  Serious: Yes (Hospitalization, Other)
  Sender: FDA-Public Use
  Company Number: US-ROCHE-2308396

PATIENT
  Age: 57 Year
  Sex: Male

DRUGS (1)
  1. OCREVUS [Suspect]
     Active Substance: OCRELIZUMAB
     Indication: RELAPSING MULTIPLE SCLEROSIS
     Dosage: DOSE: 300 MG ONCE IN 2 WEEKS, THEN 600 MG EVERY 6 MONTH?DATE OF TREATMENT: 11/MAY/2018 (300 MG) AND
     Route: 042
     Dates: start: 20180427

REACTIONS (4)
  - Asthenia [Unknown]
  - Urinary tract obstruction [Unknown]
  - Multiple sclerosis relapse [Unknown]
  - Urinary tract infection [Unknown]

NARRATIVE: CASE EVENT DATE: 201905
